FAERS Safety Report 21872579 (Version 1)
Quarter: 2023Q1

REPORT INFORMATION
  Report Type: Spontaneous
  Country: US (occurrence: US)
  Receive Date: 20230117
  Receipt Date: 20230117
  Transmission Date: 20230417
  Serious: Yes (Other)
  Sender: FDA-Public Use
  Company Number: US-MYLANLABS-2023M1004743

PATIENT
  Age: 50 Year
  Sex: Female

DRUGS (6)
  1. ACETAZOLAMIDE [Suspect]
     Active Substance: ACETAZOLAMIDE
     Indication: Open angle glaucoma
     Dosage: 500 MILLIGRAM, BID
     Route: 065
  2. BRIMONIDINE [Suspect]
     Active Substance: BRIMONIDINE TARTRATE
     Indication: Open angle glaucoma
     Dosage: UNK, TID; THRICE DAILY
     Route: 065
  3. LATANOPROST\NETARSUDIL MESYLATE [Suspect]
     Active Substance: LATANOPROST\NETARSUDIL MESYLATE
     Indication: Open angle glaucoma
     Dosage: UNK, PM; AT BEDTIME
     Route: 065
  4. LOTEPREDNOL ETABONATE [Concomitant]
     Active Substance: LOTEPREDNOL ETABONATE
     Indication: Uveitis
     Dosage: UNK
     Route: 065
  5. ILEVRO [Concomitant]
     Active Substance: NEPAFENAC
     Indication: Uveitis
     Dosage: UNK
     Route: 061
  6. DORZOLAMIDE [Concomitant]
     Active Substance: DORZOLAMIDE
     Indication: Open angle glaucoma
     Dosage: UNK
     Route: 065

REACTIONS (1)
  - Drug ineffective [Unknown]
